FAERS Safety Report 10606603 (Version 1)
Quarter: 2014Q4

REPORT INFORMATION
  Report Type: Spontaneous
  Country: US (occurrence: None)
  Receive Date: 20141124
  Receipt Date: 20141124
  Transmission Date: 20150529
  Serious: No
  Sender: FDA-Public Use
  Company Number: None

PATIENT
  Age: 40 Year
  Sex: Female
  Weight: 74.84 kg

DRUGS (1)
  1. MUCINEX DM [Suspect]
     Active Substance: DEXTROMETHORPHAN HYDROBROMIDE\GUAIFENESIN
     Indication: MALAISE
     Dosage: 1 PILL
     Route: 048

REACTIONS (4)
  - Nervousness [None]
  - Sensory disturbance [None]
  - Feeling hot [None]
  - Hallucination [None]

NARRATIVE: CASE EVENT DATE: 20141114
